FAERS Safety Report 7634061-3 (Version None)
Quarter: 2011Q3

REPORT INFORMATION
  Report Type: 
  Country: None (occurrence: None)
  Receive Date: 20110725
  Receipt Date: 20110712
  Transmission Date: 20111222
  Serious: Yes (Other)
  Sender: FDA-Public Use
  Company Number: PHHY2011US63336

PATIENT
  Age: 75 Year
  Sex: Male
  Weight: 83.9 kg

DRUGS (6)
  1. BUFFERIN [Suspect]
     Indication: HEADACHE
     Dosage: 2 DF, EVERY MORNING
  2. BUFFERIN [Suspect]
     Dosage: 2 DF, EVERY MORNING
  3. ASPIRIN [Concomitant]
  4. EXCEDRIN (MIGRAINE) [Concomitant]
  5. BUFFERIN [Suspect]
     Dosage: 12 DF/DAY
  6. TYLENOL-500 [Concomitant]
     Indication: ARTHRITIS

REACTIONS (5)
  - CLUSTER HEADACHE [None]
  - OVERDOSE [None]
  - RETINAL DETACHMENT [None]
  - EPISTAXIS [None]
  - BLINDNESS [None]
